FAERS Safety Report 9132574 (Version 3)
Quarter: 2013Q2

REPORT INFORMATION
  Report Type: Spontaneous
  Country: JP (occurrence: JP)
  Receive Date: 20130301
  Receipt Date: 20130426
  Transmission Date: 20140414
  Serious: Yes (Life-Threatening)
  Sender: FDA-Public Use
  Company Number: JP-GE HEALTHCARE MEDICAL DIAGNOSTICS-OMPQ-NO-1302S-0238

PATIENT
  Age: 62 Year
  Sex: Female

DRUGS (13)
  1. OMNIPAQUE [Suspect]
     Indication: SUBCLAVIAN STEAL SYNDROME
     Route: 042
     Dates: start: 20130212, end: 20130212
  2. OMNIPAQUE [Suspect]
     Indication: DIAGNOSTIC PROCEDURE
  3. AZUCURENIN [Concomitant]
     Dates: start: 20130110
  4. MIYA BM [Concomitant]
     Dates: start: 20130110
  5. PLETAAL [Concomitant]
     Dates: start: 20130110
  6. CRESTOR [Concomitant]
     Dates: start: 20130110
  7. TAKEPRON [Concomitant]
     Dates: start: 20130110
  8. MERCAZOLE [Concomitant]
     Dates: start: 20130113
  9. HUMULIN R [Concomitant]
     Route: 042
     Dates: start: 20130122, end: 20130212
  10. VITAMIN C [Concomitant]
     Dates: start: 20130111, end: 20130212
  11. SOLDEM 3A [Concomitant]
     Route: 042
     Dates: start: 20130129, end: 20130216
  12. CITICOLINE [Concomitant]
     Route: 042
     Dates: start: 20130129, end: 20130212
  13. MEDIEF [Concomitant]

REACTIONS (1)
  - Anaphylactoid shock [Recovered/Resolved]
